FAERS Safety Report 8818016 (Version 3)
Quarter: 2012Q4

REPORT INFORMATION
  Report Type: Report from Study
  Country: US (occurrence: US)
  Receive Date: 20121001
  Receipt Date: 20121025
  Transmission Date: 20130627
  Serious: Yes (Hospitalization)
  Sender: FDA-Public Use
  Company Number: US-ROCHE-1137727

PATIENT
  Age: 68 Year
  Sex: Male
  Weight: 102.9 kg

DRUGS (10)
  1. DILAUDID [Concomitant]
     Indication: PAIN
     Route: 048
     Dates: start: 201205
  2. FLEXERIL [Concomitant]
     Route: 048
     Dates: start: 201205
  3. PRILOSEC [Concomitant]
     Route: 048
     Dates: start: 201205
  4. LIDEX [Concomitant]
     Dosage: 1-2 times a day on dorsal hands until rash resolves.
     Route: 061
     Dates: start: 201205
  5. INDOMETHACIN [Concomitant]
     Indication: FEMUR FRACTURE
  6. AMBIEN [Concomitant]
     Route: 048
  7. NASONEX [Concomitant]
     Route: 045
  8. INVESTIGATIONAL DRUG [Suspect]
     Indication: METASTATIC MALIGNANT MELANOMA
     Dosage: Last dose prior to SAE 22/Sep/2012
     Route: 048
     Dates: start: 20120501, end: 20120922
  9. VEMURAFENIB [Suspect]
     Indication: METASTATIC MALIGNANT MELANOMA
     Dosage: Last dose prior to SAE 22/Sep/2012
     Route: 048
     Dates: start: 20120501, end: 20120922
  10. VEMURAFENIB [Suspect]
     Route: 048
     Dates: start: 20121004

REACTIONS (1)
  - Congestive cardiomyopathy [Recovered/Resolved]
